FAERS Safety Report 23198328 (Version 4)
Quarter: 2023Q4

REPORT INFORMATION
  Report Type: Report from Study
  Country: US (occurrence: US)
  Receive Date: 20231117
  Receipt Date: 20231222
  Transmission Date: 20240110
  Serious: No
  Sender: FDA-Public Use
  Company Number: US-BAUSCH-BL-2023-017084

PATIENT
  Age: 85 Year
  Sex: Female

DRUGS (2)
  1. SILIQ [Suspect]
     Active Substance: BRODALUMAB
     Indication: Psoriasis
     Route: 065
     Dates: start: 20230709
  2. SILIQ [Suspect]
     Active Substance: BRODALUMAB
     Route: 065

REACTIONS (1)
  - Thought blocking [Unknown]
